FAERS Safety Report 5132068-1 (Version None)
Quarter: 2006Q4

REPORT INFORMATION
  Report Type: 
  Country: None (occurrence: None)
  Receive Date: 20061017
  Receipt Date: 20061011
  Transmission Date: 20070319
  Serious: No
  Sender: FDA-Public Use
  Company Number: MC200600694

PATIENT
  Age: 55 Year
  Sex: Male

DRUGS (2)
  1. ANGIOMAX [Suspect]
     Indication: PERCUTANEOUS CORONARY INTERVENTION
     Dosage: 0.75 MG/KG, BOLUS, IV BOLUS; SEE IMAGE
     Route: 040
  2. PLAVIX [Concomitant]

REACTIONS (2)
  - POST PROCEDURAL COMPLICATION [None]
  - VASCULAR PSEUDOANEURYSM [None]
